FAERS Safety Report 9329721 (Version 1)
Quarter: 2013Q2

REPORT INFORMATION
  Report Type: Spontaneous
  Country: BR (occurrence: BR)
  Receive Date: 20130604
  Receipt Date: 20130604
  Transmission Date: 20140414
  Serious: Yes (Hospitalization)
  Sender: FDA-Public Use
  Company Number: BR-B.I. PHARMACEUTICALS,INC./RIDGEFIELD-2013-BR-00675BR

PATIENT
  Age: 51 Year
  Sex: Female

DRUGS (4)
  1. SPIRIVA RESPIMAT [Suspect]
     Indication: FATIGUE
     Dosage: 5 MCG
     Route: 055
     Dates: start: 2012
  2. ALENIA [Concomitant]
     Indication: FATIGUE
     Dates: start: 2012
  3. SERETIDE [Concomitant]
     Dates: start: 2010
  4. SALBUTAMOL [Concomitant]
     Dates: start: 2006

REACTIONS (9)
  - Headache [Recovered/Resolved]
  - Viral infection [Recovered/Resolved]
  - Asthenia [Recovered/Resolved]
  - Limb discomfort [Recovered/Resolved]
  - Abdominal pain [Recovered/Resolved]
  - Pyrexia [Recovered/Resolved]
  - Vomiting [Recovered/Resolved]
  - Enteritis infectious [Recovered/Resolved]
  - Gait disturbance [Recovered/Resolved]
